FAERS Safety Report 6469919-4 (Version None)
Quarter: 2009Q4

REPORT INFORMATION
  Report Type: 
  Country: None (occurrence: None)
  Receive Date: 20091203
  Receipt Date: 20071113
  Transmission Date: 20100525
  Serious: Yes (Life-Threatening, Hospitalization, Other)
  Sender: FDA-Public Use
  Company Number: DE-ELI_LILLY_AND_COMPANY-DE200710005815

PATIENT
  Sex: Female

DRUGS (3)
  1. FORTEO [Suspect]
     Indication: OSTEOPOROSIS
     Dosage: UNK, DAILY (1/D)
     Route: 058
     Dates: start: 20071011, end: 20071016
  2. FORTEO [Suspect]
     Dosage: UNK, QOD
     Route: 058
     Dates: start: 20071022
  3. CORTISONE [Concomitant]
     Dosage: UNK, UNKNOWN
     Route: 065

REACTIONS (5)
  - ARRHYTHMIA [None]
  - CARDIOVASCULAR DISORDER [None]
  - CYSTITIS [None]
  - HYPOTENSION [None]
  - KIDNEY INFECTION [None]
